FAERS Safety Report 7914818-1 (Version None)
Quarter: 2011Q4

REPORT INFORMATION
  Report Type: 
  Country: None (occurrence: None)
  Receive Date: 20111115
  Receipt Date: 20111020
  Transmission Date: 20120403
  Serious: Yes (Other)
  Sender: FDA-Public Use
  Company Number: BR-US-EMD SERONO, INC.-7094605

PATIENT
  Sex: Female

DRUGS (3)
  1. AMITRIPTILINE (AMITRIPTYLINE) [Concomitant]
  2. MANTIDAN [Concomitant]
  3. REBIF [Suspect]
     Indication: RELAPSING-REMITTING MULTIPLE SCLEROSIS
     Dates: start: 20070701

REACTIONS (2)
  - ECTOPIC PREGNANCY [None]
  - FOETAL EXPOSURE DURING PREGNANCY [None]
